FAERS Safety Report 18710833 (Version 1)
Quarter: 2021Q1

REPORT INFORMATION
  Report Type: Spontaneous
  Country: GB (occurrence: GB)
  Receive Date: 20210107
  Receipt Date: 20210107
  Transmission Date: 20210419
  Serious: Yes (Death, Hospitalization)
  Sender: FDA-Public Use
  Company Number: GB-ROCHE-2745213

PATIENT
  Age: 54 Year
  Sex: Female

DRUGS (14)
  1. BACTRIM [Concomitant]
     Active Substance: SULFAMETHOXAZOLE\TRIMETHOPRIM
  2. GRASTOFIL [Concomitant]
     Active Substance: FILGRASTIM
  3. RITUXAN [Suspect]
     Active Substance: RITUXIMAB
     Indication: PRODUCT USED FOR UNKNOWN INDICATION
     Route: 065
  4. SINGULAIR [Concomitant]
     Active Substance: MONTELUKAST SODIUM
  5. SYMBICORT [Concomitant]
     Active Substance: BUDESONIDE\FORMOTEROL FUMARATE DIHYDRATE
  6. VALTREX [Concomitant]
     Active Substance: VALACYCLOVIR HYDROCHLORIDE
  7. VESICARE [Concomitant]
     Active Substance: SOLIFENACIN SUCCINATE
  8. BENDAMUSTINE [Suspect]
     Active Substance: BENDAMUSTINE
     Indication: PRODUCT USED FOR UNKNOWN INDICATION
     Route: 065
  9. POLIVY [Suspect]
     Active Substance: POLATUZUMAB VEDOTIN-PIIQ
     Indication: PRODUCT USED FOR UNKNOWN INDICATION
     Route: 042
  10. ATARAX [Concomitant]
     Active Substance: HYDROXYZINE HYDROCHLORIDE
  11. LECTOPAM [Concomitant]
     Active Substance: BROMAZEPAM
  12. SPIRIVA [Concomitant]
     Active Substance: TIOTROPIUM BROMIDE MONOHYDRATE
  13. DECADRON [Concomitant]
     Active Substance: DEXAMETHASONE
  14. VENTOLIN [Concomitant]
     Active Substance: ALBUTEROL SULFATE
     Route: 055

REACTIONS (3)
  - Pseudomonal bacteraemia [Fatal]
  - Febrile neutropenia [Fatal]
  - Acute respiratory distress syndrome [Fatal]
